FAERS Safety Report 8183871-5 (Version None)
Quarter: 2012Q1

REPORT INFORMATION
  Report Type: 
  Country: None (occurrence: None)
  Receive Date: 20120305
  Receipt Date: 20120301
  Transmission Date: 20120608
  Serious: Yes (Other)
  Sender: FDA-Public Use
  Company Number: FR-ROCHE-1023522

PATIENT
  Age: 45 Year
  Sex: Female
  Weight: 90 kg

DRUGS (3)
  1. TAMOXIFEN CITRATE [Concomitant]
     Indication: BREAST CANCER
     Route: 048
  2. HERCEPTIN [Suspect]
     Indication: BREAST CANCER
     Route: 042
  3. HERCEPTIN [Suspect]
     Indication: METASTASES TO BONE

REACTIONS (1)
  - CARDIAC DISORDER [None]
